FAERS Safety Report 5110090-9 (Version None)
Quarter: 2006Q3

REPORT INFORMATION
  Report Type: 
  Country: None (occurrence: None)
  Receive Date: 20060921
  Receipt Date: 20060914
  Transmission Date: 20061208
  Serious: Yes (Hospitalization)
  Sender: FDA-Public Use
  Company Number: FR-AVENTIS-200613192FR

PATIENT
  Age: 71 Year
  Sex: Male

DRUGS (7)
  1. TAXOTERE [Suspect]
     Indication: LARYNGEAL CANCER
     Route: 042
     Dates: start: 20060626, end: 20060626
  2. CISPLATIN [Suspect]
     Indication: LARYNGEAL CANCER
     Route: 042
     Dates: start: 20060626, end: 20060626
  3. FLUOROURACIL [Suspect]
     Indication: LARYNGEAL CANCER
     Route: 042
     Dates: start: 20060626, end: 20060630
  4. LEVOTHYROXINE SODIUM [Concomitant]
  5. HEMIGOXINE [Concomitant]
  6. FLECAINIDE ACETATE [Concomitant]
  7. LOVENOX [Concomitant]

REACTIONS (4)
  - FEBRILE NEUTROPENIA [None]
  - HEPATIC CIRRHOSIS [None]
  - MUCOSAL INFLAMMATION [None]
  - RENAL FAILURE [None]
